FAERS Safety Report 8360377-1 (Version None)
Quarter: 2012Q1

REPORT INFORMATION
  Report Type: 
  Country: None (occurrence: None)
  Receive Date: 20120323
  Receipt Date: 20110426
  Transmission Date: 20120608
  Serious: Yes (Other)
  Sender: FDA-Public Use
  Company Number: 163-21880-11043443

PATIENT
  Age: 60 Year
  Sex: Male
  Weight: 87.9978 kg

DRUGS (7)
  1. LISINOPRIL [Concomitant]
  2. COUMADIN [Concomitant]
  3. CALCIUM + D (OS-CAL) [Concomitant]
  4. ASCORBIC ACID [Concomitant]
  5. REVLIMID [Suspect]
     Indication: MULTIPLE MYELOMA
     Dosage: 20 MG, 2 IN 1 D, PO
     Route: 048
     Dates: start: 20101101
  6. DEXAMETHASONE [Concomitant]
  7. THERA M (THERA-M) [Concomitant]

REACTIONS (3)
  - DIZZINESS [None]
  - FULL BLOOD COUNT DECREASED [None]
  - HAEMORRHAGE [None]
